FAERS Safety Report 6380506-9 (Version None)
Quarter: 2009Q3

REPORT INFORMATION
  Report Type: 
  Country: None (occurrence: None)
  Receive Date: 20090924
  Receipt Date: 20090909
  Transmission Date: 20100115
  Serious: Yes (Hospitalization)
  Sender: FDA-Public Use
  Company Number: 001727

PATIENT

DRUGS (1)
  1. LACOSAMIDE [Suspect]

REACTIONS (1)
  - HOSPITALISATION [None]
